FAERS Safety Report 16599056 (Version 20)
Quarter: 2020Q1

REPORT INFORMATION
  Report Type: Report from Study
  Country: US (occurrence: US)
  Receive Date: 20190719
  Receipt Date: 20200203
  Transmission Date: 20200409
  Serious: Yes (Other)
  Sender: FDA-Public Use
  Company Number: US-EISAI MEDICAL RESEARCH-EC-2019-059326

PATIENT
  Age: 72 Year
  Sex: Male
  Weight: 76.48 kg

DRUGS (14)
  1. LENVATINIB [Suspect]
     Active Substance: LENVATINIB
     Indication: HEPATOCELLULAR CARCINOMA
     Route: 048
     Dates: start: 20190621, end: 20190701
  2. OMEGA-3 ACIDS [Concomitant]
     Active Substance: OMEGA-3 FATTY ACIDS
     Dates: start: 200901
  3. OZEMPIC [Concomitant]
     Active Substance: SEMAGLUTIDE
     Dates: start: 201201, end: 20190711
  4. LENVATINIB [Suspect]
     Active Substance: LENVATINIB
     Route: 048
     Dates: start: 20190712, end: 20191001
  5. AVEENO ANTI-ITCH [Concomitant]
     Dates: start: 201902
  6. LISINOPRIL. [Concomitant]
     Active Substance: LISINOPRIL
     Dates: start: 20190626, end: 20190701
  7. MIRALAX [Concomitant]
     Active Substance: POLYETHYLENE GLYCOL 3350
     Dates: start: 20190626, end: 20190702
  8. ACYCLOVIR. [Concomitant]
     Active Substance: ACYCLOVIR
     Dates: start: 199001
  9. CHOLECALCIFEROL [Concomitant]
     Active Substance: CHOLECALCIFEROL
     Dates: start: 201401
  10. BIFIDOBACTERIUM BIFIDUM;BIFIDOBACTERIUM LONGUM;LACTOBACILLUS ACIDOPHIL [Concomitant]
     Dates: start: 201701, end: 20190710
  11. DIAZEPAM. [Concomitant]
     Active Substance: DIAZEPAM
     Dates: start: 201501
  12. PEMBROLIZUMAB. [Suspect]
     Active Substance: PEMBROLIZUMAB
     Indication: HEPATOCELLULAR CARCINOMA
     Route: 041
     Dates: start: 20190621
  13. PEMBROLIZUMAB. [Suspect]
     Active Substance: PEMBROLIZUMAB
     Route: 041
     Dates: start: 20190710, end: 20190911
  14. PROTONIX [Concomitant]
     Active Substance: PANTOPRAZOLE SODIUM
     Dosage: WAFER 40 MILLIGRAM
     Dates: start: 20190607

REACTIONS (1)
  - Hepatic encephalopathy [Not Recovered/Not Resolved]

NARRATIVE: CASE EVENT DATE: 20190701
